FAERS Safety Report 11434477 (Version 1)
Quarter: 2015Q3

REPORT INFORMATION
  Report Type: Spontaneous
  Country: US (occurrence: US)
  Receive Date: 20150831
  Receipt Date: 20150831
  Transmission Date: 20151125
  Serious: Yes (Other)
  Sender: FDA-Public Use
  Company Number: US-ENDO PHARMACEUTICALS INC.-2015-002576

PATIENT
  Age: 12 Year
  Sex: Female
  Weight: 83 kg

DRUGS (5)
  1. QVAR [Concomitant]
     Active Substance: BECLOMETHASONE DIPROPIONATE
     Indication: ASTHMA
     Route: 055
  2. XOPENEX [Concomitant]
     Active Substance: LEVALBUTEROL HYDROCHLORIDE
     Indication: ASTHMA
     Dosage: INHALE 1 TO 2 PUFFS EVERY 6 HOURS
     Route: 055
  3. SUPPRELIN LA [Suspect]
     Active Substance: HISTRELIN ACETATE
     Route: 065
     Dates: start: 20130916, end: 20150317
  4. SUPPRELIN LA [Suspect]
     Active Substance: HISTRELIN ACETATE
     Indication: ENDOCRINE DISORDER
     Route: 065
     Dates: start: 20150317
  5. ZOLOFT [Concomitant]
     Active Substance: SERTRALINE HYDROCHLORIDE
     Indication: ANXIETY DISORDER
     Route: 065

REACTIONS (2)
  - Ventricular extrasystoles [Unknown]
  - Incorrect drug administration duration [Recovered/Resolved]

NARRATIVE: CASE EVENT DATE: 20141016
